FAERS Safety Report 12047712 (Version 3)
Quarter: 2018Q1

REPORT INFORMATION
  Report Type: Spontaneous
  Country: US (occurrence: US)
  Receive Date: 20160208
  Receipt Date: 20180126
  Transmission Date: 20180508
  Serious: Yes (Other)
  Sender: FDA-Public Use
  Company Number: US-ABBVIE-15P-163-1379080-00

PATIENT

DRUGS (1)
  1. HUMIRA [Suspect]
     Active Substance: ADALIMUMAB
     Indication: PRODUCT USED FOR UNKNOWN INDICATION
     Route: 058

REACTIONS (9)
  - Osteoarthritis [Not Recovered/Not Resolved]
  - Intervertebral disc injury [Not Recovered/Not Resolved]
  - Surgery [Recovering/Resolving]
  - Sciatica [Not Recovered/Not Resolved]
  - Pain [Recovering/Resolving]
  - Bipolar disorder [Recovering/Resolving]
  - Drug effect incomplete [Not Recovered/Not Resolved]
  - Emotional distress [Recovering/Resolving]
  - Psoriasis [Not Recovered/Not Resolved]
